FAERS Safety Report 9199202 (Version 1)
Quarter: 2013Q1

REPORT INFORMATION
  Report Type: Spontaneous
  Country: US (occurrence: None)
  Receive Date: 20130325
  Receipt Date: 20130325
  Transmission Date: 20140127
  Serious: No
  Sender: FDA-Public Use
  Company Number: 2013US-004589

PATIENT
  Age: 82 Year
  Sex: Male
  Weight: 95.2 kg

DRUGS (8)
  1. OMONTYS (PEGINESATIDE) SOLUTION FOR INJECTION [Suspect]
     Indication: NEPHROGENIC ANAEMIA
     Dates: start: 20130214
  2. PHOSPHORUS (PHOSPHORUS) [Concomitant]
  3. FUROSEMIDE (FUROSEMIDE) [Concomitant]
  4. OXYBUTYNIN (OXYBUTYNIN) [Concomitant]
  5. OMEPRAZOLE (OMEPRAZOLE) [Concomitant]
  6. SIMVASTATIN (SIMVASTATIN) [Concomitant]
  7. CARVEDILOL (CARVEDILOL) [Concomitant]
  8. NIFEDIPINE (NIFEDEIPINE) [Concomitant]

REACTIONS (4)
  - Asthenia [None]
  - Dizziness [None]
  - Feeling abnormal [None]
  - Fall [None]
